FAERS Safety Report 16894108 (Version 6)
Quarter: 2020Q3

REPORT INFORMATION
  Report Type: Report from Study
  Country: CA (occurrence: CA)
  Receive Date: 20191008
  Receipt Date: 20200605
  Transmission Date: 20201105
  Serious: Yes (Hospitalization)
  Sender: FDA-Public Use
  Company Number: CA-JNJFOC-20191003487

PATIENT
  Age: 66 Year
  Sex: Female
  Weight: 123.8 kg

DRUGS (31)
  1. DARATUMUMAB [Suspect]
     Active Substance: DARATUMUMAB
     Indication: PLASMA CELL MYELOMA
     Dosage: 2192 MILLIGRAM, PER CHEMO REGIM
     Route: 042
     Dates: start: 20180215
  2. ATORVASTATIN [Concomitant]
     Active Substance: ATORVASTATIN
     Dosage: 20 MILLIGRAM
     Dates: start: 2008
  3. AZITHROMYCINE [Concomitant]
     Active Substance: AZITHROMYCIN
     Dosage: 250?500 MILLIGRAM
     Dates: start: 20190711, end: 20190715
  4. OXYCODONE [Concomitant]
     Active Substance: OXYCODONE
     Dosage: 5 MILLIGRAM
     Dates: start: 20171223
  5. AAS [Concomitant]
     Active Substance: ASPIRIN
     Dosage: 80 MILLIGRAM
     Dates: start: 20190222
  6. NOVORAPID [Concomitant]
     Active Substance: INSULIN ASPART
     Dosage: 26 UNK
     Dates: start: 201302
  7. PAMIDRONATE [Concomitant]
     Active Substance: PAMIDRONATE DISODIUM
     Dosage: 30 MILLIGRAM
     Dates: start: 20190625
  8. VITAMIN D3 [Concomitant]
     Active Substance: CHOLECALCIFEROL
     Dosage: 10000 UNK
     Dates: start: 20190623
  9. NOVOLIN GE NPH [Concomitant]
     Active Substance: INSULIN BEEF
     Dosage: 26 UNK
     Dates: start: 201302
  10. DIPHENHYDRAMINE. [Concomitant]
     Active Substance: DIPHENHYDRAMINE
     Dosage: 12.5?50 MILLIGRAM
     Dates: start: 20180215
  11. CARVEDILOL. [Concomitant]
     Active Substance: CARVEDILOL
     Dosage: 6.25 MILLIGRAM
     Dates: start: 20181119, end: 20200106
  12. GAMMA GLOBULIN [Concomitant]
     Active Substance: IMMUNE GLOBULIN NOS
     Dosage: 50 GRAM
     Dates: start: 20190711, end: 20190711
  13. METFORMIN [Concomitant]
     Active Substance: METFORMIN HYDROCHLORIDE
     Dosage: 1000 MILLIGRAM
     Dates: start: 1999
  14. CARFILZOMIB [Suspect]
     Active Substance: CARFILZOMIB
     Indication: PLASMA CELL MYELOMA
     Dosage: 99 MILLIGRAM, PER CHEMO REGIM
     Route: 042
     Dates: start: 20180215
  15. DEXAMETHASONE. [Suspect]
     Active Substance: DEXAMETHASONE
     Indication: PLASMA CELL MYELOMA
     Dosage: 20 MILLIGRAM
     Route: 042
     Dates: start: 20190905
  16. BETAMETHASONE VALERATE. [Concomitant]
     Active Substance: BETAMETHASONE VALERATE
     Dosage: 0.1 UNK
     Dates: start: 20190719, end: 20191009
  17. SYNTHROID [Concomitant]
     Active Substance: LEVOTHYROXINE SODIUM
     Dosage: 100 MICROGRAM
     Dates: start: 20180623
  18. CALCIUM [Concomitant]
     Active Substance: CALCIUM
     Dosage: 500 MILLIGRAM
     Dates: start: 2012
  19. SALBUTAMOL [Concomitant]
     Active Substance: ALBUTEROL
     Dosage: 200 MICROGRAM
     Dates: start: 20180328
  20. VITAMIN B12 [Concomitant]
     Active Substance: CYANOCOBALAMIN
     Dosage: 1000 MICROGRAM
     Dates: start: 2010
  21. ENOXAPARIN [Concomitant]
     Active Substance: ENOXAPARIN
     Dosage: 30 MICROGRAM
     Dates: start: 20190924, end: 20190927
  22. MONTELUKAST [Concomitant]
     Active Substance: MONTELUKAST SODIUM
     Dosage: 10 MILLIGRAM
     Route: 048
     Dates: start: 20180215
  23. VALACYCLOVIR [Concomitant]
     Active Substance: VALACYCLOVIR HYDROCHLORIDE
     Dosage: 500 MILLIGRAM
     Dates: start: 20190313
  24. ZOPICLONE [Concomitant]
     Active Substance: ZOPICLONE
     Dosage: 5 MILLIGRAM
     Dates: start: 20190828
  25. VITAMINE D [Concomitant]
     Active Substance: CHOLECALCIFEROL
     Dosage: 400 INTERNATIONAL UNIT
     Dates: start: 2012
  26. ACETAMINOPHEN. [Concomitant]
     Active Substance: ACETAMINOPHEN
     Dosage: 650 MILLIGRAM
     Dates: start: 20180215
  27. PANTOPRAZOLE [Concomitant]
     Active Substance: PANTOPRAZOLE
     Dosage: 40 MILLIGRAM
     Dates: start: 20190313
  28. PREGABALIN. [Concomitant]
     Active Substance: PREGABALIN
     Dosage: 25 MILLIGRAM
     Dates: start: 20190828
  29. LOPERAMIDE [Concomitant]
     Active Substance: LOPERAMIDE
     Dosage: 2 MILLIGRAM
     Dates: start: 2013
  30. CARFILZOMIB [Suspect]
     Active Substance: CARFILZOMIB
     Dosage: UNK, PER CHEMO REGIM
     Route: 042
  31. HYDROCORTISONE. [Concomitant]
     Active Substance: HYDROCORTISONE
     Dosage: 50 MILLIGRAM
     Dates: start: 20190711, end: 20190711

REACTIONS (1)
  - Device related infection [Recovered/Resolved]

NARRATIVE: CASE EVENT DATE: 20190918
